FAERS Safety Report 9135190 (Version 1)
Quarter: 2013Q1

REPORT INFORMATION
  Report Type: Spontaneous
  Country: AU (occurrence: AU)
  Receive Date: 20130304
  Receipt Date: 20130304
  Transmission Date: 20140127
  Serious: Yes (Life-Threatening, Hospitalization, Other)
  Sender: FDA-Public Use
  Company Number: AU-UCBSA-078921

PATIENT
  Sex: Male

DRUGS (3)
  1. KEPPRA [Suspect]
     Indication: EPILEPSY
     Dosage: 2 G DAILY
  2. DEXAMETHASONE [Suspect]
  3. CARBAMAZEPINE [Concomitant]

REACTIONS (4)
  - Suicide attempt [Not Recovered/Not Resolved]
  - Psychotic disorder [Not Recovered/Not Resolved]
  - Delusion [Not Recovered/Not Resolved]
  - Intentional self-injury [Not Recovered/Not Resolved]
